FAERS Safety Report 6827651-9 (Version None)
Quarter: 2010Q3

REPORT INFORMATION
  Report Type: 
  Country: None (occurrence: None)
  Receive Date: 20100709
  Receipt Date: 20070123
  Transmission Date: 20110219
  Serious: No
  Sender: FDA-Public Use
  Company Number: US-PFIZER INC-2007007370

PATIENT
  Sex: Female
  Weight: 63.5 kg

DRUGS (4)
  1. CHANTIX [Suspect]
     Indication: SMOKING CESSATION THERAPY
     Dates: start: 20061214
  2. NORGESIC FORTE [Concomitant]
     Indication: CERVICAL CORD COMPRESSION
  3. ALPRAZOLAM [Concomitant]
     Indication: ANXIETY
  4. NICOTINE [Concomitant]
     Indication: SMOKING CESSATION THERAPY

REACTIONS (1)
  - DIZZINESS [None]
